FAERS Safety Report 5492310-4 (Version None)
Quarter: 2007Q4

REPORT INFORMATION
  Report Type: 
  Country: None (occurrence: None)
  Receive Date: 20071022
  Receipt Date: 20070717
  Transmission Date: 20080405
  Serious: Yes (Other)
  Sender: FDA-Public Use
  Company Number: US-SANOFI-SYNTHELABO-A03200704029

PATIENT
  Sex: Female
  Weight: 54.4 kg

DRUGS (3)
  1. TAPAZOLE [Concomitant]
     Indication: HYPERTHYROIDISM
     Dosage: UNK
     Route: 048
     Dates: end: 20050901
  2. AMBIEN [Suspect]
     Indication: SLEEP DISORDER DUE TO GENERAL MEDICAL CONDITION, INSOMNIA TYPE
     Dosage: STARTED WITH 10 MG + WENT DOWN TO 5 MG HS
     Route: 048
     Dates: start: 20040601, end: 20050401
  3. AMBIEN [Suspect]
     Route: 048
     Dates: start: 20051201, end: 20061201

REACTIONS (7)
  - AMNESIA [None]
  - EATING DISORDER [None]
  - FALL [None]
  - SEXUAL DYSFUNCTION [None]
  - SLEEP TALKING [None]
  - SOMNAMBULISM [None]
  - VICTIM OF SEXUAL ABUSE [None]
